FAERS Safety Report 16782342 (Version 1)
Quarter: 2019Q3

REPORT INFORMATION
  Report Type: Spontaneous
  Country: GB (occurrence: GB)
  Receive Date: 20190906
  Receipt Date: 20190906
  Transmission Date: 20191005
  Serious: Yes (Hospitalization)
  Sender: FDA-Public Use
  Company Number: GB-MYLANLABS-2019M1083490

PATIENT
  Age: 65 Year
  Sex: Female

DRUGS (10)
  1. NOVOMIX [Concomitant]
     Active Substance: INSULIN ASPART
     Indication: TYPE 2 DIABETES MELLITUS
  2. INSULIN [Concomitant]
     Active Substance: INSULIN NOS
     Indication: TYPE 2 DIABETES MELLITUS
     Dosage: UNK
  3. NAPROXEN. [Suspect]
     Active Substance: NAPROXEN
     Indication: SCIATICA
     Dosage: 1000 MILLIGRAM, QD
     Route: 048
     Dates: start: 20190308, end: 20190319
  4. PERINDOPRIL [Concomitant]
     Active Substance: PERINDOPRIL
  5. BISOPROLOL [Concomitant]
     Active Substance: BISOPROLOL
  6. MOVICOL [Concomitant]
     Active Substance: POLYETHYLENE GLYCOL 3350\POTASSIUM CHLORIDE\SODIUM BICARBONATE\SODIUM CHLORIDE
  7. OMEPRAZOLE. [Concomitant]
     Active Substance: OMEPRAZOLE
     Dosage: UNK
  8. SIMVASTATIN. [Concomitant]
     Active Substance: SIMVASTATIN
     Dosage: 80 MILLIGRAM, QD (NIGHT)
  9. DOCUSATE SODIUM. [Concomitant]
     Active Substance: DOCUSATE SODIUM
  10. APIXABAN [Concomitant]
     Active Substance: APIXABAN

REACTIONS (3)
  - Back pain [Unknown]
  - Gastritis [Recovered/Resolved with Sequelae]
  - Constipation [Unknown]

NARRATIVE: CASE EVENT DATE: 20190311
